FAERS Safety Report 8346039-5 (Version None)
Quarter: 2012Q2

REPORT INFORMATION
  Report Type: 
  Country: None (occurrence: None)
  Receive Date: 20120509
  Receipt Date: 20120504
  Transmission Date: 20120825
  Serious: No
  Sender: FDA-Public Use
  Company Number: US-PFIZER INC-2012110392

PATIENT
  Sex: Male

DRUGS (1)
  1. PEDIATRIC ADVIL [Suspect]
     Dosage: UNK

REACTIONS (4)
  - RASH [None]
  - HYPERSENSITIVITY [None]
  - URTICARIA [None]
  - ERYTHEMA [None]
